FAERS Safety Report 6570579-2 (Version None)
Quarter: 2010Q1

REPORT INFORMATION
  Report Type: 
  Country: None (occurrence: None)
  Receive Date: 20100204
  Receipt Date: 20100122
  Transmission Date: 20100710
  Serious: Yes (Hospitalization)
  Sender: FDA-Public Use
  Company Number: US-ELI_LILLY_AND_COMPANY-US201001005290

PATIENT
  Sex: Female

DRUGS (3)
  1. ZYPREXA [Suspect]
     Indication: BIPOLAR DISORDER
     Dosage: 10 MG, DAILY (1/D)
     Route: 065
     Dates: start: 20091101, end: 20091201
  2. ZYPREXA [Suspect]
     Dosage: 10 MG, DAILY (1/D)
     Route: 065
     Dates: start: 20091221
  3. DEPAKOTE [Concomitant]
     Dosage: UNK, UNKNOWN
     Route: 065

REACTIONS (4)
  - EXPIRED DRUG ADMINISTERED [None]
  - INTENTIONAL DRUG MISUSE [None]
  - PSYCHIATRIC SYMPTOM [None]
  - WEIGHT INCREASED [None]
